FAERS Safety Report 24374328 (Version 1)
Quarter: 2024Q3

REPORT INFORMATION
  Report Type: Spontaneous
  Country: US (occurrence: US)
  Receive Date: 20240927
  Receipt Date: 20240927
  Transmission Date: 20241016
  Serious: Yes (Hospitalization, Other)
  Sender: PURDUE
  Company Number: US-PURDUE-USA-2024-0312199

PATIENT
  Age: 36 Year
  Sex: Female

DRUGS (3)
  1. DRONABINOL [Suspect]
     Active Substance: DRONABINOL
     Indication: Product used for unknown indication
     Dosage: UNK
     Route: 048
  2. DRONABINOL [Suspect]
     Active Substance: DRONABINOL
     Dosage: UNK
     Route: 055
  3. TRAZODONE [Concomitant]
     Active Substance: TRAZODONE HYDROCHLORIDE
     Indication: Product used for unknown indication
     Dosage: UNKNOWN
     Route: 065

REACTIONS (5)
  - Unresponsive to stimuli [Recovered/Resolved]
  - Mental status changes [Recovered/Resolved]
  - Toxicity to various agents [Recovered/Resolved]
  - Seizure [Recovered/Resolved]
  - Drug screen positive [Unknown]
